FAERS Safety Report 24052666 (Version 1)
Quarter: 2024Q3

REPORT INFORMATION
  Report Type: Spontaneous
  Country: NL (occurrence: NL)
  Receive Date: 20240705
  Receipt Date: 20240705
  Transmission Date: 20241016
  Serious: Yes (Hospitalization)
  Sender: Unknown Manufacturer
  Company Number: NL-GILEAD-2024-0677262

PATIENT
  Age: 49 Year
  Sex: Male
  Weight: 130 kg

DRUGS (22)
  1. GEMCITABINE HYDROCHLORIDE\OXALIPLATIN\RITUXIMAB [Suspect]
     Active Substance: GEMCITABINE HYDROCHLORIDE\OXALIPLATIN\RITUXIMAB
     Indication: Burkitt^s lymphoma
     Dosage: UNK
     Route: 065
     Dates: start: 20240430, end: 20240514
  2. GEMCITABINE HYDROCHLORIDE\OXALIPLATIN\RITUXIMAB [Suspect]
     Active Substance: GEMCITABINE HYDROCHLORIDE\OXALIPLATIN\RITUXIMAB
     Dosage: UNK
     Route: 065
     Dates: start: 20240430, end: 20240514
  3. GEMCITABINE HYDROCHLORIDE\OXALIPLATIN\RITUXIMAB [Suspect]
     Active Substance: GEMCITABINE HYDROCHLORIDE\OXALIPLATIN\RITUXIMAB
     Dosage: UNK
     Route: 065
     Dates: start: 20240430, end: 20240514
  4. MESNA [Suspect]
     Active Substance: MESNA
     Indication: Prophylaxis
     Dosage: ^250^
     Route: 065
     Dates: start: 20240610, end: 20240610
  5. MESNA [Suspect]
     Active Substance: MESNA
     Dosage: ^250^
     Route: 065
     Dates: start: 20240608, end: 20240608
  6. MESNA [Suspect]
     Active Substance: MESNA
     Dosage: ^250^
     Route: 065
     Dates: start: 20240609, end: 20240609
  7. MESNA [Suspect]
     Active Substance: MESNA
     Dosage: ^250^
     Route: 065
     Dates: start: 20240609, end: 20240609
  8. MESNA [Suspect]
     Active Substance: MESNA
     Dosage: ^250^
     Route: 065
     Dates: start: 20240610, end: 20240610
  9. MESNA [Suspect]
     Active Substance: MESNA
     Dosage: ^250^
     Route: 065
     Dates: start: 20240608, end: 20240608
  10. CYCLOPHOSPHAMIDE [Suspect]
     Active Substance: CYCLOPHOSPHAMIDE
     Indication: Bone marrow conditioning regimen
     Dosage: ^1350^
     Route: 065
     Dates: start: 20240610, end: 20240610
  11. CYCLOPHOSPHAMIDE [Suspect]
     Active Substance: CYCLOPHOSPHAMIDE
     Dosage: ^1350^
     Route: 065
     Dates: start: 20240609, end: 20240609
  12. CYCLOPHOSPHAMIDE [Suspect]
     Active Substance: CYCLOPHOSPHAMIDE
     Dosage: ^1350^
     Route: 065
     Dates: start: 20240608, end: 20240608
  13. BREXUCABTAGENE AUTOLEUCEL [Suspect]
     Active Substance: BREXUCABTAGENE AUTOLEUCEL
     Indication: Burkitt^s lymphoma
     Dosage: UNK
     Dates: start: 20240613, end: 20240613
  14. FLUDARABINE [Suspect]
     Active Substance: FLUDARABINE PHOSPHATE
     Indication: Bone marrow conditioning regimen
     Dosage: ^80^
     Route: 065
     Dates: start: 20240610, end: 20240610
  15. FLUDARABINE [Suspect]
     Active Substance: FLUDARABINE PHOSPHATE
     Dosage: ^80^
     Route: 065
     Dates: start: 20240609, end: 20240609
  16. FLUDARABINE [Suspect]
     Active Substance: FLUDARABINE PHOSPHATE
     Dosage: ^80^
     Route: 065
     Dates: start: 20240608, end: 20240608
  17. OXALIPLATIN [Suspect]
     Active Substance: OXALIPLATIN
     Indication: Burkitt^s lymphoma
     Dosage: UNK
     Route: 065
     Dates: start: 20240430, end: 20240514
  18. RITUXIMAB [Suspect]
     Active Substance: RITUXIMAB
     Indication: Burkitt^s lymphoma
     Dosage: UNK
     Route: 065
     Dates: start: 20240430, end: 20240514
  19. OLANZAPINE [Concomitant]
     Active Substance: OLANZAPINE
     Indication: Product used for unknown indication
     Dosage: 2.5,MG,AS NECESSARY
     Dates: start: 2024
  20. PANTOPRAZOLE [Concomitant]
     Active Substance: PANTOPRAZOLE
     Indication: Product used for unknown indication
     Dosage: 40,MG,DAILY
     Dates: start: 2024
  21. POLYETHYLENE GLYCOLS [Concomitant]
     Active Substance: POLYETHYLENE GLYCOLS
     Indication: Product used for unknown indication
     Dosage: 1,OTHER,AS NECESSARY
     Dates: start: 2024
  22. PANTOPRAZOLE [Concomitant]
     Active Substance: PANTOPRAZOLE
     Dosage: 40,MG,DAILY
     Dates: start: 2024

REACTIONS (1)
  - Immune effector cell-associated neurotoxicity syndrome [Unknown]

NARRATIVE: CASE EVENT DATE: 20240618
